FAERS Safety Report 17390995 (Version 1)
Quarter: 2020Q1

REPORT INFORMATION
  Report Type: Spontaneous
  Country: US (occurrence: US)
  Receive Date: 20200207
  Receipt Date: 20200207
  Transmission Date: 20200409
  Serious: No
  Sender: FDA-Public Use
  Company Number: US-TEVA-2020-US-1182041

PATIENT
  Age: 50 Year
  Sex: Female

DRUGS (10)
  1. PENTASA CR [Concomitant]
  2. RELPAX [Concomitant]
     Active Substance: ELETRIPTAN HYDROBROMIDE
  3. OMEPRAZOLE. [Concomitant]
     Active Substance: OMEPRAZOLE
  4. COPAXONE [Suspect]
     Active Substance: GLATIRAMER ACETATE
     Indication: MULTIPLE SCLEROSIS
     Route: 058
     Dates: start: 20140609
  5. IRON FORMULA [Concomitant]
  6. VITAMIN D [Concomitant]
     Active Substance: VITAMIN D NOS
     Dosage: VITAMIN D CAP 2000 UNIT
  7. ASPIRIN CHW [Concomitant]
  8. CALCIUM GLUC [Concomitant]
  9. PENTASA CR [Concomitant]
  10. COPAXONE [Concomitant]
     Active Substance: GLATIRAMER ACETATE

REACTIONS (1)
  - Osteoporosis [Not Recovered/Not Resolved]
